FAERS Safety Report 16219101 (Version 3)
Quarter: 2019Q4

REPORT INFORMATION
  Report Type: Spontaneous
  Country: US (occurrence: US)
  Receive Date: 20190419
  Receipt Date: 20191010
  Transmission Date: 20200122
  Serious: Yes (Death, Hospitalization, Other)
  Sender: FDA-Public Use
  Company Number: US-ASTRAZENECA-2018SF65810

PATIENT
  Age: 75 Year
  Sex: Male

DRUGS (10)
  1. NEXIUM [Suspect]
     Active Substance: ESOMEPRAZOLE MAGNESIUM
     Indication: GASTROOESOPHAGEAL REFLUX DISEASE
     Route: 048
  2. LIPITOR [Concomitant]
     Active Substance: ATORVASTATIN CALCIUM
  3. LEVOTHYROXINE. [Concomitant]
     Active Substance: LEVOTHYROXINE
  4. SYNTHROID [Concomitant]
     Active Substance: LEVOTHYROXINE SODIUM
  5. ZAROXOLYN [Concomitant]
     Active Substance: METOLAZONE
  6. ATENOLOL. [Concomitant]
     Active Substance: ATENOLOL
  7. HYDRALAZINE [Concomitant]
     Active Substance: HYDRALAZINE HYDROCHLORIDE
  8. COUMADIN [Concomitant]
     Active Substance: WARFARIN SODIUM
  9. LASIX [Concomitant]
     Active Substance: FUROSEMIDE
  10. NEXIUM [Suspect]
     Active Substance: ESOMEPRAZOLE MAGNESIUM
     Indication: GASTROOESOPHAGEAL REFLUX DISEASE
     Dosage: 40.0MG UNKNOWN
     Route: 048
     Dates: start: 1970

REACTIONS (8)
  - Acute kidney injury [Unknown]
  - Pneumonia [Fatal]
  - End stage renal disease [Unknown]
  - Septic shock [Fatal]
  - Acute respiratory failure [Fatal]
  - Rebound acid hypersecretion [Unknown]
  - Renal failure [Unknown]
  - Chronic kidney disease [Unknown]

NARRATIVE: CASE EVENT DATE: 2000
